FAERS Safety Report 9867686 (Version 2)
Quarter: 2014Q1

REPORT INFORMATION
  Report Type: Report from Study
  Country: CA (occurrence: CA)
  Receive Date: 20140204
  Receipt Date: 20140204
  Transmission Date: 20141002
  Serious: Yes (Hospitalization, Other)
  Sender: FDA-Public Use
  Company Number: CA-SANOFI-AVENTIS-2012SA049337

PATIENT
  Age: 49 Year
  Sex: Female
  Weight: 61.7 kg

DRUGS (6)
  1. TERIFLUNOMIDE [Suspect]
     Indication: MULTIPLE SCLEROSIS RELAPSE
     Dosage: DOSE:1 UNIT(S)
     Route: 048
     Dates: start: 20090924, end: 20120709
  2. VALTREX [Concomitant]
     Route: 048
     Dates: start: 20071110
  3. CIPRALEX /DEN/ [Concomitant]
     Route: 048
     Dates: start: 20071201
  4. WELLBUTRIN [Concomitant]
     Route: 048
     Dates: start: 20070723
  5. MIRENA [Concomitant]
     Dates: start: 200705
  6. ALPRAZOLAM [Concomitant]
     Indication: DEPRESSION

REACTIONS (3)
  - Thyroid neoplasm [Not Recovered/Not Resolved]
  - Erysipelas [Recovered/Resolved]
  - Suicidal ideation [Recovered/Resolved]
